FAERS Safety Report 9787718 (Version 1)
Quarter: 2013Q4

REPORT INFORMATION
  Report Type: Spontaneous
  Country: GB (occurrence: GB)
  Receive Date: 20131230
  Receipt Date: 20131230
  Transmission Date: 20140711
  Serious: Yes (Hospitalization, Disabling, Other)
  Sender: FDA-Public Use
  Company Number: GB-RANBAXY-2013R1-76396

PATIENT
  Age: 33 Year
  Sex: Female
  Weight: 42 kg

DRUGS (1)
  1. ISOTRETINOIN [Suspect]
     Indication: ACNE
     Dosage: 40 MG, QD
     Route: 048
     Dates: start: 20131101, end: 20131202

REACTIONS (4)
  - Rhabdomyolysis [Not Recovered/Not Resolved]
  - Pain in extremity [Unknown]
  - Local swelling [Unknown]
  - Blood creatine phosphokinase increased [Unknown]
